FAERS Safety Report 18649500 (Version 4)
Quarter: 2021Q3

REPORT INFORMATION
  Report Type: Spontaneous
  Country: CA (occurrence: CA)
  Receive Date: 20201222
  Receipt Date: 20210701
  Transmission Date: 20211014
  Serious: Yes (Other)
  Sender: FDA-Public Use
  Company Number: CA-PFIZER INC-2020400825

PATIENT
  Age: 49 Year
  Sex: Male

DRUGS (6)
  1. SOMAVERT [Suspect]
     Active Substance: PEGVISOMANT
     Indication: ACROMEGALY
     Dosage: 15 MG, DAILY
     Route: 058
     Dates: start: 20201016, end: 202012
  2. SOMATULINE [LANREOTIDE] [Concomitant]
     Active Substance: LANREOTIDE
     Dosage: 60 MG, MONTHLY (Q MONTH)
     Route: 065
  3. METOPROLOL. [Concomitant]
     Active Substance: METOPROLOL
     Dosage: 50 MG, Q UNK
     Route: 065
  4. PRO RAMIPRIL [Concomitant]
     Dosage: 2.5 G,Q UNK
     Route: 065
  5. SANDOSTATIN [Concomitant]
     Active Substance: OCTREOTIDE ACETATE
     Dosage: UNK
  6. CITALOPRAM [Concomitant]
     Active Substance: CITALOPRAM HYDROBROMIDE
     Dosage: 20 MG, Q UNK
     Route: 065

REACTIONS (8)
  - Contraindicated product administered [Unknown]
  - Neoplasm [Unknown]
  - Libido increased [Unknown]
  - Insulin-like growth factor increased [Unknown]
  - Off label use [Unknown]
  - Product use issue [Unknown]
  - Product administration interrupted [Unknown]
  - Headache [Unknown]

NARRATIVE: CASE EVENT DATE: 202010
